FAERS Safety Report 7434381-1 (Version None)
Quarter: 2011Q2

REPORT INFORMATION
  Report Type: 
  Country: None (occurrence: None)
  Receive Date: 20110425
  Receipt Date: 20110411
  Transmission Date: 20111010
  Serious: Yes (Other)
  Sender: FDA-Public Use
  Company Number: PHHY2010CA83976

PATIENT
  Sex: Female

DRUGS (1)
  1. ACLASTA [Suspect]
     Indication: OSTEOPOROSIS
     Dosage: 5 MG, UNK
     Route: 042
     Dates: start: 20101214

REACTIONS (12)
  - EAR PAIN [None]
  - HEADACHE [None]
  - LIP SWELLING [None]
  - SWELLING FACE [None]
  - RASH [None]
  - GENERAL PHYSICAL CONDITION ABNORMAL [None]
  - BONE PAIN [None]
  - HYPERSENSITIVITY [None]
  - FATIGUE [None]
  - BACK PAIN [None]
  - SENSATION OF PRESSURE [None]
  - PAIN IN EXTREMITY [None]
